FAERS Safety Report 10267851 (Version 1)
Quarter: 2014Q2

REPORT INFORMATION
  Report Type: Spontaneous
  Country: US (occurrence: US)
  Receive Date: 20140630
  Receipt Date: 20140630
  Transmission Date: 20141212
  Serious: No
  Sender: FDA-Public Use
  Company Number: US-PFIZER INC-2014174186

PATIENT
  Age: 63 Year
  Sex: Male

DRUGS (2)
  1. INLYTA [Suspect]
     Indication: RENAL CANCER
     Dosage: 5 MG, 2X/DAY
     Route: 048
     Dates: start: 20140301
  2. INLYTA [Suspect]
     Dosage: 3 MG, 2X/DAY
     Route: 048

REACTIONS (2)
  - Fatigue [Unknown]
  - Nausea [Unknown]
